FAERS Safety Report 23529021 (Version 8)
Quarter: 2024Q2

REPORT INFORMATION
  Report Type: Report from Study
  Country: PT (occurrence: PT)
  Receive Date: 20240216
  Receipt Date: 20240503
  Transmission Date: 20240716
  Serious: Yes (Hospitalization, Other)
  Sender: FDA-Public Use
  Company Number: PT-ABBVIE-5625859

PATIENT
  Age: 74 Year
  Sex: Female

DRUGS (13)
  1. CARBIDOPA\LEVODOPA [Suspect]
     Active Substance: CARBIDOPA\LEVODOPA
     Indication: Parkinson^s disease
     Dosage: 20 MG + 5 MG, ?FREQUENCY TEXT: MORN:18.5CC;MAIN:5.4CC/H;EXTRA:2CC
     Route: 050
     Dates: start: 2023, end: 20240226
  2. CARBIDOPA\LEVODOPA [Suspect]
     Active Substance: CARBIDOPA\LEVODOPA
     Route: 050
  3. CARBIDOPA\LEVODOPA [Suspect]
     Active Substance: CARBIDOPA\LEVODOPA
     Dosage: 20 MG + 5 MG?FREQUENCY TEXT: MORN:19.5CC;MAIN:5.7CC/H;EXTRA:2CC
     Route: 050
     Dates: start: 20240226, end: 20240304
  4. CARBIDOPA\LEVODOPA [Suspect]
     Active Substance: CARBIDOPA\LEVODOPA
     Dosage: 20 MG + 5 MG, ?FREQUENCY TEXT: MORN:19.5CC;MAIN:5.9CC/H;EXTRA:3CC
     Route: 050
     Dates: start: 20240304
  5. CARBIDOPA\LEVODOPA [Suspect]
     Active Substance: CARBIDOPA\LEVODOPA
     Dosage: 20 MG + 5 MG? MORN:14.5CC;MAIN:4.6CC/H;EXTRA:2CC?LAST ADMIN 2023
     Route: 050
     Dates: start: 20230612
  6. EDOXABAN [Concomitant]
     Active Substance: EDOXABAN
     Indication: Atrial flutter
     Dosage: 1 TABLET 30 MILLIGRAM, FORM STRENGTH: 30 MILLIGRAM
     Route: 048
     Dates: start: 20240221
  7. Zepacla [Concomitant]
     Indication: Product used for unknown indication
     Dosage: 1 TABLET?FORM STRENGTH: 0.5 MG, AT BEDTIME?START DATE TEXT: BEFORE DUODOPA
     Route: 065
  8. PERINDOPRIL [Concomitant]
     Active Substance: PERINDOPRIL
     Indication: Hypertension
     Dosage: FORM STRENGTH: 10 MG, ?START DATE -BEFORE DUODOPA
     Route: 048
  9. ETHYL LOFLAZEPATE [Concomitant]
     Active Substance: ETHYL LOFLAZEPATE
     Indication: Product used for unknown indication
     Dosage: FORM STRENGTH: 2 MG, 1 TABLET IN SOS?START DATE: BEFORE DUODOPA
     Route: 048
  10. RIVASTIGMINE [Concomitant]
     Active Substance: RIVASTIGMINE
     Indication: Product used for unknown indication
     Dosage: 4.6MG/24H??START DATE TEXT: BEFORE DUODOPA
     Route: 062
  11. ESCITALOPRAM [Concomitant]
     Active Substance: ESCITALOPRAM OXALATE
     Indication: Product used for unknown indication
     Dosage: 1 TABLET?IN THE MORNING? START DATE- BEFORE DUODOPA?FORM STRENGTH: 10 MG
     Route: 048
  12. RIVAROXABAN [Concomitant]
     Active Substance: RIVAROXABAN
     Indication: Atrial flutter
     Dosage: 1 TABLET ?FORM STRENGTH: 20 MG?START DATE TEXT: BEFORE DUODOPA
     Route: 048
     Dates: end: 202402
  13. CLONAZEPAM [Concomitant]
     Active Substance: CLONAZEPAM
     Indication: Product used for unknown indication
     Dosage: 1 TABLET  - FORM STRENGTH: 0.5 MILLIGRAM?START DATE TEXT: BEFORE DUODOPA
     Route: 048

REACTIONS (9)
  - Haemorrhoidal haemorrhage [Recovering/Resolving]
  - Skin discolouration [Recovered/Resolved]
  - Oedema peripheral [Recovered/Resolved]
  - Mucosal discolouration [Recovered/Resolved]
  - Pallor [Recovered/Resolved]
  - Haemorrhoids [Recovering/Resolving]
  - Anaemia [Recovering/Resolving]
  - Rectal haemorrhage [Recovered/Resolved]
  - Asthenia [Recovering/Resolving]

NARRATIVE: CASE EVENT DATE: 20240201
